FAERS Safety Report 4600832-0 (Version None)
Quarter: 2005Q1

REPORT INFORMATION
  Report Type: 
  Country: None (occurrence: None)
  Receive Date: 20050304
  Receipt Date: 20050216
  Transmission Date: 20050727
  Serious: Yes (Hospitalization)
  Sender: FDA-Public Use
  Company Number: 2005SE00956

PATIENT
  Age: 65 Year
  Sex: Male

DRUGS (7)
  1. CRESTOR [Suspect]
     Dosage: 10 MG QD PO
     Route: 048
     Dates: start: 20040501, end: 20041001
  2. CRESTOR [Suspect]
     Dates: start: 20041201
  3. METOPROLOL SUCCINATE [Concomitant]
  4. ZANIDIP [Concomitant]
  5. FYSIOTENS [Concomitant]
  6. PROBECID [Concomitant]
  7. TRIOBE [Concomitant]

REACTIONS (2)
  - CHRONIC INFLAMMATORY DEMYELINATING POLYRADICULONEUROPATHY [None]
  - GUILLAIN-BARRE SYNDROME [None]
